FAERS Safety Report 16981066 (Version 3)
Quarter: 2021Q3

REPORT INFORMATION
  Report Type: Report from Study
  Country: GB (occurrence: GB)
  Receive Date: 20191031
  Receipt Date: 20210827
  Transmission Date: 20211014
  Serious: Yes (Life-Threatening, Hospitalization, Other)
  Sender: FDA-Public Use
  Company Number: GB-BRISTOL-MYERS SQUIBB COMPANY-BMS-2019-097022

PATIENT
  Age: 59 Year
  Sex: Female
  Weight: 83.3 kg

DRUGS (18)
  1. DALTEPARIN [Concomitant]
     Active Substance: DALTEPARIN
     Indication: PRODUCT USED FOR UNKNOWN INDICATION
     Dosage: 5000 ABSENT, QD
     Route: 058
     Dates: start: 20190909, end: 20190913
  2. OMEPRAZOLE. [Concomitant]
     Active Substance: OMEPRAZOLE
     Indication: PRODUCT USED FOR UNKNOWN INDICATION
     Dosage: 20 MILLIGRAM, QD
     Route: 048
     Dates: start: 20190910
  3. CYCLIZINE [Concomitant]
     Active Substance: CYCLIZINE
     Indication: NAUSEA
     Dosage: 50 MILLIGRAM, QD
     Route: 048
     Dates: start: 20190910, end: 20190910
  4. CO?AMOXICLAV [AMOXICILLIN;CLAVULANATE POTASSIUM] [Concomitant]
     Active Substance: AMOXICILLIN\CLAVULANATE POTASSIUM
     Indication: UPPER RESPIRATORY TRACT INFECTION
     Dosage: 625 MILLIGRAM, Q8H
     Route: 048
     Dates: start: 20190902, end: 20190906
  5. LOPERAMIDE [Concomitant]
     Active Substance: LOPERAMIDE
     Dosage: 2 MILLIGRAM, Q6H
     Route: 048
     Dates: start: 20191004
  6. CO?AMOXICLAV [AMOXICILLIN;CLAVULANATE POTASSIUM] [Concomitant]
     Active Substance: AMOXICILLIN\CLAVULANATE POTASSIUM
     Indication: UPPER RESPIRATORY TRACT INFECTION
     Dosage: 1.2 GRAM, Q8H
     Route: 042
     Dates: start: 20190831, end: 20190831
  7. PREDNISOLONE. [Concomitant]
     Active Substance: PREDNISOLONE
     Indication: COLITIS
     Dosage: 40 MILLIGRAM, QD
     Route: 048
     Dates: start: 20190910, end: 20191004
  8. TEMOZOLOMIDE. [Suspect]
     Active Substance: TEMOZOLOMIDE
     Indication: GLIOBLASTOMA
     Dosage: 400 MILLIGRAM, QD
     Route: 048
     Dates: start: 20190709
  9. LEVETIRACETAM. [Concomitant]
     Active Substance: LEVETIRACETAM
     Indication: SEIZURE PROPHYLAXIS
     Dosage: 750 MILLIGRAM, Q12H
     Route: 048
     Dates: start: 20190201, end: 20191008
  10. DOMPERIDONE [Concomitant]
     Active Substance: DOMPERIDONE
     Indication: NAUSEA
     Dosage: 10 MILLIGRAM, AS NEEDED
     Route: 048
     Dates: start: 20190201, end: 20190827
  11. LOPERAMIDE [Concomitant]
     Active Substance: LOPERAMIDE
     Indication: DIARRHOEA
     Dosage: 2 MILLIGRAM, WHEN NEEDED
     Route: 048
     Dates: start: 20190902, end: 20191009
  12. TAZOCIN [Concomitant]
     Active Substance: PIPERACILLIN SODIUM\TAZOBACTAM SODIUM
     Dosage: 4.5 GRAM, Q8H
     Route: 042
     Dates: start: 20190909, end: 20190912
  13. TAZOCIN [Concomitant]
     Active Substance: PIPERACILLIN SODIUM\TAZOBACTAM SODIUM
     Indication: UPPER RESPIRATORY TRACT INFECTION
     Dosage: 4.5 MILLIGRAM, Q8H
     Route: 042
     Dates: start: 20190901, end: 20190902
  14. TRIMETHOPRIM. [Concomitant]
     Active Substance: TRIMETHOPRIM
     Indication: URINARY TRACT INFECTION
     Dosage: 200 MILLIGRAM, Q12H
     Route: 048
     Dates: start: 20190906, end: 20190910
  15. METHYLPREDNISOLONE. [Concomitant]
     Active Substance: METHYLPREDNISOLONE
     Indication: COLITIS
     Dosage: 40 MILLIGRAM, QD
     Route: 042
     Dates: start: 20191004
  16. IPILIMUMAB [Suspect]
     Active Substance: IPILIMUMAB
     Indication: GLIOBLASTOMA
     Dosage: 290 MILLIGRAM, Q3WK FOR 4 DOSES
     Route: 042
     Dates: start: 20190618
  17. DALTEPARIN [Concomitant]
     Active Substance: DALTEPARIN
     Dosage: UNK
     Route: 058
     Dates: start: 20191004, end: 20191017
  18. NYSTATIN. [Concomitant]
     Active Substance: NYSTATIN
     Indication: ORAL CANDIDIASIS
     Dosage: UNK UNK, QD
     Route: 065
     Dates: start: 20190909, end: 20190913

REACTIONS (2)
  - Large intestine perforation [Recovered/Resolved]
  - Colitis [Recovered/Resolved]

NARRATIVE: CASE EVENT DATE: 20191004
